FAERS Safety Report 20390120 (Version 1)
Quarter: 2022Q1

REPORT INFORMATION
  Report Type: Spontaneous
  Country: ES (occurrence: ES)
  Receive Date: 20220128
  Receipt Date: 20220128
  Transmission Date: 20220423
  Serious: Yes (Other)
  Sender: FDA-Public Use
  Company Number: None

PATIENT
  Age: 60 Year
  Sex: Female

DRUGS (1)
  1. FENTANYL [Suspect]
     Active Substance: FENTANYL
     Dosage: FENTANILO (1543A)
     Dates: start: 20201101, end: 20201109

REACTIONS (1)
  - Ileus paralytic [Unknown]

NARRATIVE: CASE EVENT DATE: 20201109
